FAERS Safety Report 6631701-2 (Version None)
Quarter: 2010Q1

REPORT INFORMATION
  Report Type: 
  Country: None (occurrence: None)
  Receive Date: 20100312
  Receipt Date: 20100301
  Transmission Date: 20100710
  Serious: Yes (Hospitalization)
  Sender: FDA-Public Use
  Company Number: DE-ELI_LILLY_AND_COMPANY-DE201003000523

PATIENT
  Age: 54 Year
  Sex: Female

DRUGS (11)
  1. CYMBALTA [Suspect]
     Indication: DEPRESSION
     Dosage: 60 MG, UNK
     Route: 048
     Dates: end: 20090827
  2. CYMBALTA [Suspect]
     Dosage: 90 MG, UNK
     Route: 048
     Dates: start: 20090828
  3. GODAMED /00002701/ [Concomitant]
     Dosage: 100 MG, UNK
     Route: 048
  4. BELOC-ZOK [Concomitant]
     Dosage: 47.5 MG, UNK
     Route: 048
  5. PANTOZOL [Concomitant]
     Dosage: 20 MG, UNK
     Route: 048
     Dates: start: 20090903
  6. SEROQUEL [Concomitant]
     Dosage: 200 MG, UNK
     Route: 048
     Dates: start: 20090828, end: 20090828
  7. SEROQUEL [Concomitant]
     Dosage: 300 MG, UNK
     Route: 048
     Dates: start: 20090829, end: 20090830
  8. SEROQUEL [Concomitant]
     Dosage: 400 MG, UNK
     Route: 048
     Dates: start: 20090831, end: 20090914
  9. SEROQUEL [Concomitant]
     Dosage: 300 MG, UNK
     Route: 048
     Dates: start: 20090915, end: 20090917
  10. SEROQUEL [Concomitant]
     Dosage: 200 MG, UNK
     Route: 048
     Dates: start: 20090918, end: 20090920
  11. SEROQUEL [Concomitant]
     Dosage: 100 MG, UNK
     Route: 048
     Dates: start: 20090921, end: 20090923

REACTIONS (1)
  - HEPATIC ENZYME INCREASED [None]
